FAERS Safety Report 6970531-9 (Version None)
Quarter: 2010Q3

REPORT INFORMATION
  Report Type: 
  Country: None (occurrence: None)
  Receive Date: 20100908
  Receipt Date: 20100902
  Transmission Date: 20110219
  Serious: Yes (Hospitalization)
  Sender: FDA-Public Use
  Company Number: DK-EISAI INC.-E3810-03783-CLI-DK

PATIENT
  Sex: Female
  Weight: 11 kg

DRUGS (1)
  1. RABEPRAZOLE SODIUM [Suspect]
     Dosage: UNKNOWN
     Route: 048

REACTIONS (1)
  - LYMPHADENITIS [None]
